FAERS Safety Report 4307599-4 (Version None)
Quarter: 2004Q1

REPORT INFORMATION
  Report Type: 
  Country: None (occurrence: None)
  Receive Date: 20040226
  Receipt Date: 20040219
  Transmission Date: 20041129
  Serious: No
  Sender: FDA-Public Use
  Company Number: 2004GB00441

PATIENT
  Age: 76 Year
  Sex: Female

DRUGS (5)
  1. CRESTOR [Suspect]
     Indication: HYPERCHOLESTEROLAEMIA
     Dosage: 10 MG PO
     Route: 048
     Dates: start: 20040119, end: 20040120
  2. DALMANE [Concomitant]
  3. LEXOTAN [Concomitant]
  4. LOSEC [Concomitant]
  5. NUSEALS ASPIRIN [Concomitant]

REACTIONS (2)
  - MICTURITION DISORDER [None]
  - POLLAKIURIA [None]
